FAERS Safety Report 20991195 (Version 1)
Quarter: 2022Q2

REPORT INFORMATION
  Report Type: Spontaneous
  Country: US (occurrence: US)
  Receive Date: 20220622
  Receipt Date: 20220622
  Transmission Date: 20220721
  Serious: No
  Sender: FDA-Public Use
  Company Number: US-IGSA-BIG0015226

PATIENT
  Sex: Female
  Weight: 68.934 kg

DRUGS (2)
  1. HYPERRAB [Suspect]
     Active Substance: HUMAN RABIES VIRUS IMMUNE GLOBULIN
     Indication: Animal bite
     Dosage: UNK, SINGLE
     Route: 030
     Dates: start: 20210617, end: 20210617
  2. RABIES VACCINE [Concomitant]
     Active Substance: RABIES VACCINE
     Dosage: UNK
     Dates: start: 20210617, end: 20210617

REACTIONS (11)
  - Product administered at inappropriate site [Not Recovered/Not Resolved]
  - Pain in extremity [Not Recovered/Not Resolved]
  - Sensory loss [Not Recovered/Not Resolved]
  - Burning sensation [Not Recovered/Not Resolved]
  - Paraesthesia [Not Recovered/Not Resolved]
  - Incorrect dose administered [Not Recovered/Not Resolved]
  - Nerve compression [Not Recovered/Not Resolved]
  - Hypoaesthesia [Unknown]
  - Mobility decreased [Unknown]
  - Asthenia [Unknown]
  - Neuropathy peripheral [Unknown]

NARRATIVE: CASE EVENT DATE: 20210101
